FAERS Safety Report 10947562 (Version 1)
Quarter: 2015Q1

REPORT INFORMATION
  Report Type: Spontaneous
  Country: US (occurrence: None)
  Receive Date: 20150212
  Receipt Date: 20150212
  Transmission Date: 20150721
  Serious: No
  Sender: FDA-Public Use
  Company Number: TPA2011A05027

PATIENT
  Age: 57 Year
  Sex: Female

DRUGS (8)
  1. ULORIC [Suspect]
     Active Substance: FEBUXOSTAT
     Indication: GOUT
     Route: 048
     Dates: start: 201107
  2. ADVAIR DISKUS [Concomitant]
     Active Substance: FLUTICASONE PROPIONATE\SALMETEROL XINAFOATE
  3. HYDROCODONE (HYDROCODONE) [Concomitant]
     Active Substance: HYDROCODONE
  4. GABAPENTIN (GABAPENTIN) [Concomitant]
     Active Substance: GABAPENTIN
  5. RELAFEN (NABUMETONE) [Concomitant]
  6. DETROL LA [Concomitant]
     Active Substance: TOLTERODINE TARTRATE
  7. FOLIC ACID (FOLIC ACID) [Concomitant]
     Active Substance: FOLIC ACID
  8. VITAMINS (ERGOCALCIFEROL, ASCORBIC ACID, THIAMINE HYYDROCHLORIDE, RETINOL, RITOFLAVIN, NICOTINAMIDE [Concomitant]

REACTIONS (2)
  - Gout [None]
  - Rheumatoid arthritis [None]

NARRATIVE: CASE EVENT DATE: 2011
